FAERS Safety Report 9281267 (Version 2)
Quarter: 2013Q2

REPORT INFORMATION
  Report Type: Spontaneous
  Country: US (occurrence: US)
  Receive Date: 20130509
  Receipt Date: 20130529
  Transmission Date: 20140414
  Serious: Yes (Other)
  Sender: FDA-Public Use
  Company Number: US-PFIZER INC-2013143490

PATIENT
  Sex: Female

DRUGS (2)
  1. ESTROGENS CONJUGATED [Suspect]
     Indication: HORMONE REPLACEMENT THERAPY
     Dosage: UNK
  2. ESTROGENS CONJUGATED [Suspect]
     Dosage: UNK

REACTIONS (4)
  - Ovarian mass [Unknown]
  - Breast neoplasm [Unknown]
  - Uterine neoplasm [Unknown]
  - Cystitis [Unknown]
